FAERS Safety Report 8346830-5 (Version None)
Quarter: 2012Q2

REPORT INFORMATION
  Report Type: 
  Country: None (occurrence: None)
  Receive Date: 20120509
  Receipt Date: 20120427
  Transmission Date: 20120825
  Serious: Yes (Hospitalization, Other)
  Sender: FDA-Public Use
  Company Number: JP-BAYER-2012-041055

PATIENT
  Age: 73 Year
  Sex: Female

DRUGS (6)
  1. EPA [Suspect]
     Indication: PULMONARY EMBOLISM
  2. ASPIRIN [Suspect]
     Indication: VARICOSE VEIN OPERATION
  3. CLOPIDOGREL BISULFATE [Suspect]
     Indication: VARICOSE VEIN OPERATION
     Route: 048
  4. ASPIRIN [Suspect]
     Indication: PULMONARY EMBOLISM
     Route: 048
  5. CLOPIDOGREL BISULFATE [Suspect]
     Indication: PULMONARY EMBOLISM
  6. EPA [Suspect]
     Indication: VARICOSE VEIN OPERATION
     Route: 048

REACTIONS (4)
  - EXTRADURAL HAEMATOMA [None]
  - THORACIC VERTEBRAL FRACTURE [None]
  - OSTEOPOROSIS [None]
  - RADICULOPATHY [None]
